FAERS Safety Report 6539633-5 (Version None)
Quarter: 2010Q1

REPORT INFORMATION
  Report Type: 
  Country: None (occurrence: None)
  Receive Date: 20100115
  Receipt Date: 20100104
  Transmission Date: 20100710
  Serious: Yes (Other)
  Sender: FDA-Public Use
  Company Number: GXKR2010DE00671

PATIENT
  Sex: Female

DRUGS (4)
  1. LAMOTRIGIN HEXAL (NGX) [Suspect]
     Indication: DEPRESSION
     Dosage: 100 MG, BID
     Route: 048
  2. AMITRIPTYLINE [Concomitant]
     Dosage: 50 MG, QHS
     Route: 048
  3. LEVOTHYROXINE SODIUM [Concomitant]
     Dosage: 125 UG, QD
     Route: 048
  4. METOPROLOL [Concomitant]
     Dosage: 95 MG, BID
     Route: 048

REACTIONS (8)
  - ARRHYTHMIA [None]
  - ATRIAL FIBRILLATION [None]
  - DEPRESSION [None]
  - HEPATIC ENZYME ABNORMAL [None]
  - HEPATIC STEATOSIS [None]
  - LUNG NEOPLASM [None]
  - URINARY INCONTINENCE [None]
  - WEIGHT INCREASED [None]
